FAERS Safety Report 25805478 (Version 1)
Quarter: 2025Q3

REPORT INFORMATION
  Report Type: Spontaneous
  Country: RU (occurrence: RU)
  Receive Date: 20250916
  Receipt Date: 20250916
  Transmission Date: 20251020
  Serious: Yes (Other)
  Sender: SANDOZ
  Company Number: None

PATIENT
  Sex: Male
  Weight: 53 kg

DRUGS (1)
  1. METHOTREXATE [Suspect]
     Active Substance: METHOTREXATE
     Indication: Product used for unknown indication
     Route: 030
     Dates: start: 20250221, end: 20250228

REACTIONS (5)
  - Asthenia [Recovering/Resolving]
  - Lethargy [Recovering/Resolving]
  - Red blood cell sedimentation rate increased [Recovering/Resolving]
  - Muscular weakness [Recovering/Resolving]
  - Pyrexia [Recovering/Resolving]
